FAERS Safety Report 15372091 (Version 1)
Quarter: 2018Q3

REPORT INFORMATION
  Report Type: Spontaneous
  Country: FR (occurrence: FR)
  Receive Date: 20180911
  Receipt Date: 20180911
  Transmission Date: 20181010
  Serious: Yes (Other)
  Sender: FDA-Public Use
  Company Number: FR-SA-2018SA246177

PATIENT
  Age: 65 Year
  Sex: Male
  Weight: 77.5 kg

DRUGS (2)
  1. RIFINAH [Suspect]
     Active Substance: ISONIAZID\RIFAMPIN
     Indication: RENAL TUBERCULOSIS
     Dosage: 2 DF, QD (COATED TABLET)
     Route: 048
  2. MODOPAR [Interacting]
     Active Substance: BENSERAZIDE HYDROCHLORIDE\LEVODOPA
     Indication: PARKINSON^S DISEASE
     Dosage: 1 DF, QD
     Route: 048
     Dates: start: 201803, end: 201806

REACTIONS (1)
  - Muscle rigidity [Recovered/Resolved]

NARRATIVE: CASE EVENT DATE: 201804
